FAERS Safety Report 8180313-0 (Version None)
Quarter: 2012Q1

REPORT INFORMATION
  Report Type: 
  Country: None (occurrence: None)
  Receive Date: 20120302
  Receipt Date: 20120217
  Transmission Date: 20120608
  Serious: Yes (Hospitalization)
  Sender: FDA-Public Use
  Company Number: IN-MYLANLABS-2012S1003970

PATIENT
  Age: 75 Year
  Sex: Female

DRUGS (2)
  1. CALCIUM [Concomitant]
     Indication: OSTEOPENIA
     Dosage: SUPPLEMENTS
     Route: 065
  2. ALENDRONIC ACID [Suspect]
     Indication: OSTEOPENIA
     Route: 065

REACTIONS (2)
  - HYPERPARATHYROIDISM SECONDARY [None]
  - FEMUR FRACTURE [None]
